FAERS Safety Report 4592072-9 (Version None)
Quarter: 2005Q1

REPORT INFORMATION
  Report Type: 
  Country: None (occurrence: None)
  Receive Date: 20050125
  Receipt Date: 20040826
  Transmission Date: 20050727
  Serious: No
  Sender: FDA-Public Use
  Company Number: USA040876567

PATIENT
  Age: 82 Year
  Sex: Female
  Weight: 48 kg

DRUGS (6)
  1. FORTEO [Suspect]
     Indication: OSTEOPOROSIS
     Dosage: 20 UG/1 DAY
     Dates: start: 20040407
  2. COLAZAL (BALSALAZIDE SODIUM) [Concomitant]
  3. GUANFACINE HCL [Concomitant]
  4. SOTALOL HCL [Concomitant]
  5. NORVASC [Concomitant]
  6. CALCIUM GLUCONATE [Concomitant]

REACTIONS (5)
  - ARTHRITIS [None]
  - BONE PAIN [None]
  - HAND DEFORMITY [None]
  - INJECTION SITE HAEMORRHAGE [None]
  - PAIN IN EXTREMITY [None]
